FAERS Safety Report 18137625 (Version 1)
Quarter: 2020Q3

REPORT INFORMATION
  Report Type: Spontaneous
  Country: JP (occurrence: JP)
  Receive Date: 20200811
  Receipt Date: 20200811
  Transmission Date: 20201103
  Serious: Yes (Hospitalization, Other)
  Sender: FDA-Public Use
  Company Number: JP-PURDUE-USA-2020-0161417

PATIENT
  Age: 42 Year
  Sex: Male

DRUGS (14)
  1. LYRICA [Concomitant]
     Active Substance: PREGABALIN
     Indication: NEURALGIA
     Dosage: 150 MG, DAILY
     Route: 048
     Dates: start: 20190422
  2. KEYTRUDA [Suspect]
     Active Substance: PEMBROLIZUMAB
     Indication: RECTAL CANCER
     Dosage: UNK
     Route: 041
     Dates: start: 20200501, end: 20200501
  3. WARFARIN                           /00014803/ [Concomitant]
     Active Substance: WARFARIN
     Indication: PULMONARY EMBOLISM
     Dosage: 1.5 MG, DAILY
     Route: 048
     Dates: start: 20200409
  4. NAIXAN                             /00256201/ [Concomitant]
     Active Substance: NAPROXEN
     Indication: RECTAL CANCER
     Dosage: 300 MG, DAILY
     Route: 048
     Dates: start: 20200408
  5. SODIUM FERROUS CITRATE [Concomitant]
     Active Substance: SODIUM FERROUS CITRATE
     Dosage: UNK
     Route: 065
  6. TEGRETOL [Concomitant]
     Active Substance: CARBAMAZEPINE
     Indication: NEURALGIA
     Dosage: 200 MG, DAILY
     Route: 048
     Dates: start: 20191008, end: 20200430
  7. MS CONTIN [Suspect]
     Active Substance: MORPHINE SULFATE
     Indication: CANCER PAIN
     Dosage: 1680 MG, DAILY
     Route: 048
     Dates: start: 20200425
  8. MORPHINE HYDROCHLORIDE TRIHYDRATE [Suspect]
     Active Substance: MORPHINE HYDROCHLORIDE
     Indication: CANCER PAIN
     Dosage: UNK
     Route: 048
     Dates: start: 20200425
  9. METHYCOBAL [Concomitant]
     Active Substance: METHYLCOBALAMIN
     Indication: NEURALGIA
     Dosage: 1500 MG, DAILY
     Route: 048
     Dates: start: 20191008
  10. RIVOTRIL [Suspect]
     Active Substance: CLONAZEPAM
     Indication: NEURALGIA
     Dosage: 1 MG, DAILY
     Route: 048
     Dates: start: 20200421
  11. TRYPTANOL                          /00002202/ [Suspect]
     Active Substance: AMITRIPTYLINE
     Indication: NEURALGIA
     Dosage: 10 MG, DAILY
     Route: 048
     Dates: start: 20200430
  12. SYMPROIC [Suspect]
     Active Substance: NALDEMEDINE
     Indication: CONSTIPATION
     Dosage: 0.2 MG, DAILY
     Route: 048
     Dates: start: 20200425
  13. MS CONTIN [Suspect]
     Active Substance: MORPHINE SULFATE
     Indication: RECTAL CANCER
  14. CALONAL [Concomitant]
     Active Substance: ACETAMINOPHEN
     Indication: NEURALGIA
     Dosage: 4000 MG, DAILY
     Route: 048
     Dates: start: 20190521

REACTIONS (2)
  - Decreased appetite [Recovered/Resolved]
  - Hepatic function abnormal [Recovered/Resolved]

NARRATIVE: CASE EVENT DATE: 20200503
